FAERS Safety Report 4514844-9 (Version None)
Quarter: 2004Q4

REPORT INFORMATION
  Report Type: 
  Country: None (occurrence: None)
  Receive Date: 20041201
  Receipt Date: 20041122
  Transmission Date: 20050328
  Serious: Yes (Hospitalization)
  Sender: FDA-Public Use
  Company Number: AU-BRISTOL-MYERS SQUIBB COMPANY-12771580

PATIENT
  Sex: Female

DRUGS (14)
  1. SERZONE [Suspect]
     Indication: DEPRESSION
     Route: 048
     Dates: start: 19970101, end: 20040101
  2. PHYSEPTONE [Concomitant]
     Indication: PAIN
  3. DOLOXENE [Concomitant]
  4. PARIET [Concomitant]
  5. CLIMARA [Concomitant]
     Route: 062
  6. RHINOCORT [Concomitant]
     Route: 045
  7. ALPRAZOLAM [Concomitant]
  8. CLARITIN [Concomitant]
  9. PARACETAMOL [Concomitant]
  10. SANDOMIGRAN [Concomitant]
  11. MEXITIL [Concomitant]
  12. COLOXYL [Concomitant]
  13. DURALEX [Concomitant]
  14. GAVISCON [Concomitant]

REACTIONS (1)
  - DRUG WITHDRAWAL SYNDROME [None]
